FAERS Safety Report 18312671 (Version 1)
Quarter: 2020Q3

REPORT INFORMATION
  Report Type: Spontaneous
  Country: US (occurrence: US)
  Receive Date: 20200925
  Receipt Date: 20200925
  Transmission Date: 20201103
  Serious: Yes (Hospitalization)
  Sender: FDA-Public Use
  Company Number: None

PATIENT
  Age: 30 Year
  Sex: Male
  Weight: 108 kg

DRUGS (12)
  1. AMLODIPINE [Concomitant]
     Active Substance: AMLODIPINE BESYLATE
     Dates: start: 20200919
  2. MYCOPHENOLATE [Concomitant]
     Active Substance: MYCOPHENOLIC ACID
     Dates: start: 20200918
  3. OXYCODONE [Concomitant]
     Active Substance: OXYCODONE
     Dates: start: 20200918
  4. DOCUSATE [Concomitant]
     Active Substance: DOCUSATE
     Dates: start: 20200918
  5. SULFAMETHOXAZOLE?TRIMETHOPRIM [Suspect]
     Active Substance: SULFAMETHOXAZOLE\TRIMETHOPRIM
     Indication: PNEUMOCYSTIS JIROVECII PNEUMONIA
     Route: 048
     Dates: start: 20200918, end: 20200924
  6. ACETAMINOPHEN. [Concomitant]
     Active Substance: ACETAMINOPHEN
     Dates: start: 20200918
  7. TACROLIMUS. [Concomitant]
     Active Substance: TACROLIMUS
     Dates: start: 20200918
  8. CHOLECALCIFEROL [Concomitant]
     Active Substance: CHOLECALCIFEROL
     Dates: start: 20191104
  9. PREDNISONE. [Concomitant]
     Active Substance: PREDNISONE
     Dates: start: 20200918
  10. SULFAMETHOXAZOLE?TRIMETHOPRIM [Suspect]
     Active Substance: SULFAMETHOXAZOLE\TRIMETHOPRIM
     Indication: PROPHYLAXIS
     Route: 048
     Dates: start: 20200918, end: 20200924
  11. BACTRIM [Concomitant]
     Active Substance: SULFAMETHOXAZOLE\TRIMETHOPRIM
     Dates: start: 20200918, end: 20200924
  12. VALGANCICLOVIR. [Concomitant]
     Active Substance: VALGANCICLOVIR
     Dates: start: 20200918

REACTIONS (3)
  - Renal transplant [None]
  - Pruritus [None]
  - Immunosuppressant drug level increased [None]

NARRATIVE: CASE EVENT DATE: 20200924
